FAERS Safety Report 7401496-3 (Version None)
Quarter: 2011Q2

REPORT INFORMATION
  Report Type: 
  Country: None (occurrence: None)
  Receive Date: 20110408
  Receipt Date: 20110328
  Transmission Date: 20111010
  Serious: Yes (Hospitalization, Other)
  Sender: FDA-Public Use
  Company Number: DE-RANBAXY-2010RR-31151

PATIENT
  Age: 28 Year
  Sex: Male
  Weight: 77 kg

DRUGS (5)
  1. REACTINE, 10 MG, FILMTABL, MCNEIL [Suspect]
     Indication: ALLERGY TO ANIMAL
     Dosage: 10 MG, TID
     Route: 048
     Dates: start: 20090919, end: 20090921
  2. PARACETAMOL [Suspect]
     Dosage: UNK
     Route: 048
     Dates: start: 20090824, end: 20090831
  3. IBUPROFEN [Suspect]
     Dosage: 200 MG, TID
     Route: 048
     Dates: start: 20090824, end: 20090831
  4. SYMBICORT TURBOHALER, 160/4,5 UG, INH [Concomitant]
     Indication: ASTHMA
     Dosage: 1 DF, BID
     Route: 055
     Dates: start: 20090701
  5. GRIPPOSTAD C, HARTKPS, STADA [Suspect]
     Dosage: 2 DF, TID
     Route: 048
     Dates: start: 20090902, end: 20090905

REACTIONS (1)
  - HEPATITIS ACUTE [None]
